FAERS Safety Report 4362381-7 (Version None)
Quarter: 2004Q2

REPORT INFORMATION
  Report Type: 
  Country: None (occurrence: None)
  Receive Date: 20040518
  Receipt Date: 20040504
  Transmission Date: 20050107
  Serious: No
  Sender: FDA-Public Use
  Company Number: RENA-11013

PATIENT
  Age: 19 Year
  Sex: Male

DRUGS (14)
  1. RENAGEL [Suspect]
     Indication: HYPERPHOSPHATAEMIA
  2. PANCREALIPASE [Concomitant]
  3. PREDNISONE [Concomitant]
  4. NEPHROVITE [Concomitant]
  5. FLUOXETINE [Concomitant]
  6. SODIUM BICARBONATE [Concomitant]
  7. GABAPENTIN [Concomitant]
  8. ENOXAPARIN SODIUM [Concomitant]
  9. CETIRIZINE HCL [Concomitant]
  10. METOCLOPRAMIDE [Concomitant]
  11. LANSOPRAZOLE [Concomitant]
  12. FOLIC ACID [Concomitant]
  13. VITAMIN B-12 [Concomitant]
  14. EPOGEN [Concomitant]

REACTIONS (3)
  - OEDEMA PERIPHERAL [None]
  - RENAL DISORDER [None]
  - SKIN FIBROSIS [None]
